FAERS Safety Report 8439107 (Version 2)
Quarter: 2013Q2

REPORT INFORMATION
  Report Type: Spontaneous
  Country: US (occurrence: None)
  Receive Date: 20120104
  Receipt Date: 20120508
  Transmission Date: 20140414
  Serious: Yes (Other)
  Sender: FDA-Public Use
  Company Number: 2011HGS-002917

PATIENT
  Age: 69 Year
  Sex: Female
  Weight: 81.65 kg

DRUGS (15)
  1. BENLYSTA [Suspect]
     Indication: SYSTEMIC LUPUS ERYTHEMATOSUS
     Dosage: 10 MG/KG, 1 IN 28 D,  INTRAVENOUS DRIP
     Route: 041
     Dates: start: 20111118
  2. GLYBURIDE [Concomitant]
  3. METFORMIN HYDROCHLORIDE [Concomitant]
  4. PREDNISONE [Concomitant]
  5. IMURAN [Concomitant]
  6. CALCIUM PLUS VITAMIN D (VITACAL) (CALCIUM, VITAMIN D NOS) [Concomitant]
  7. VITAMIN B12 (CYANOCOBALAMIN) (CYANOCOBALAMIN) [Concomitant]
  8. MULTIVITAMIN (MULTIVITAMINS) (ERGOCALCIFEROL, ASCORBIC ACID, FOLIC ACID, THIAMINE HYDROCHLORIDE, RETINOL, RIBOFLAVIN, NICOTINAMIDE, PANTHENOL) [Concomitant]
  9. LEVOTHYROXINE SODIUM [Concomitant]
  10. OMEPRAZOLE [Concomitant]
  11. LASIX (FUROSEMIDE, FUROSEMIDE SODIUM) [Concomitant]
  12. LOVASTATIN [Concomitant]
  13. ZYRTEC [Concomitant]
  14. SINGULAIR [Concomitant]
  15. IMITREX (SUMATRIPTAN) [Concomitant]

REACTIONS (6)
  - BLOOD GLUCOSE INCREASED [None]
  - RESTLESSNESS [None]
  - LOWER RESPIRATORY TRACT INFECTION [None]
  - PRODUCTIVE COUGH [None]
  - PULMONARY CONGESTION [None]
  - INSOMNIA [None]
